FAERS Safety Report 17405980 (Version 1)
Quarter: 2020Q1

REPORT INFORMATION
  Report Type: Spontaneous
  Country: US (occurrence: US)
  Receive Date: 20200212
  Receipt Date: 20200212
  Transmission Date: 20200409
  Serious: No
  Sender: FDA-Public Use
  Company Number: US-ALLERGAN-1951374US

PATIENT
  Sex: Male

DRUGS (1)
  1. TAZAROTENE - BP [Suspect]
     Active Substance: TAZAROTENE
     Indication: PRODUCT USED FOR UNKNOWN INDICATION
     Dosage: 0.1 %, UNKNOWN
     Route: 065

REACTIONS (3)
  - Chemical burn [Unknown]
  - Pain [Unknown]
  - Pruritus [Unknown]
